FAERS Safety Report 17169202 (Version 2)
Quarter: 2020Q1

REPORT INFORMATION
  Report Type: Report from Study
  Country: US (occurrence: US)
  Receive Date: 20191218
  Receipt Date: 20200218
  Transmission Date: 20200409
  Serious: Yes (Hospitalization)
  Sender: FDA-Public Use
  Company Number: US-BAYER-2019-222891

PATIENT
  Age: 76 Year
  Sex: Male

DRUGS (14)
  1. ALLOPURINOL. [Concomitant]
     Active Substance: ALLOPURINOL
  2. OMEPRAZOLE. [Concomitant]
     Active Substance: OMEPRAZOLE
  3. HYDROCORTISONE. [Concomitant]
     Active Substance: HYDROCORTISONE
  4. REGORAFENIB. [Suspect]
     Active Substance: REGORAFENIB
     Indication: NEOPLASM MALIGNANT
     Dosage: 120 MG, QD
     Route: 048
     Dates: start: 20191223, end: 20200102
  5. ASCORBIC ACID. [Concomitant]
     Active Substance: ASCORBIC ACID
  6. CHOLECALCIFEROL [Concomitant]
     Active Substance: CHOLECALCIFEROL
  7. MULTIVITAMINS [VITAMINS NOS] [Concomitant]
     Active Substance: VITAMINS
  8. TORSEMIDE. [Concomitant]
     Active Substance: TORSEMIDE
  9. REGORAFENIB. [Suspect]
     Active Substance: REGORAFENIB
     Indication: NEOPLASM MALIGNANT
     Dosage: 160 MG, QD
     Route: 048
     Dates: start: 20191125, end: 20191203
  10. JAKAFI [Concomitant]
     Active Substance: RUXOLITINIB
  11. TAMSULOSIN [Concomitant]
     Active Substance: TAMSULOSIN
  12. FLUTICASONE PROPIONATE. [Concomitant]
     Active Substance: FLUTICASONE PROPIONATE
  13. FINASTERIDE. [Concomitant]
     Active Substance: FINASTERIDE
  14. MIRTAZAPINE. [Concomitant]
     Active Substance: MIRTAZAPINE

REACTIONS (4)
  - Blood bilirubin increased [Recovered/Resolved]
  - Blood bilirubin increased [Not Recovered/Not Resolved]
  - Pneumonia [Recovered/Resolved]
  - Asthenia [Recovered/Resolved]

NARRATIVE: CASE EVENT DATE: 201912
